FAERS Safety Report 6657637-9 (Version None)
Quarter: 2010Q1

REPORT INFORMATION
  Report Type: 
  Country: None (occurrence: None)
  Receive Date: 20100330
  Receipt Date: 20100318
  Transmission Date: 20100710
  Serious: Yes (Other)
  Sender: FDA-Public Use
  Company Number: TR-PFIZER INC-2010039627

PATIENT
  Age: 35 Year
  Sex: Female
  Weight: 56 kg

DRUGS (1)
  1. CLEOCIN [Suspect]
     Dosage: 600 MG, 2X/DAY
     Dates: start: 20100216, end: 20100217

REACTIONS (2)
  - DIARRHOEA [None]
  - SYNCOPE [None]
